FAERS Safety Report 17497834 (Version 2)
Quarter: 2020Q2

REPORT INFORMATION
  Report Type: Spontaneous
  Country: GB (occurrence: GB)
  Receive Date: 20200304
  Receipt Date: 20200413
  Transmission Date: 20200713
  Serious: Yes (Hospitalization, Other)
  Sender: FDA-Public Use
  Company Number: GB-MYLANLABS-2020M1023188

PATIENT
  Age: 52 Year
  Sex: Male

DRUGS (12)
  1. CLOZARIL [Suspect]
     Active Substance: CLOZAPINE
     Indication: SCHIZOPHRENIA
     Dosage: 200 MILLIGRAM, AM
     Route: 048
     Dates: start: 20010701
  2. TRIMBOW [Concomitant]
     Active Substance: BECLOMETHASONE DIPROPIONATE\FORMOTEROL FUMARATE\GLYCOPYRROLATE
     Dosage: UNK
  3. CLOZARIL [Suspect]
     Active Substance: CLOZAPINE
     Dosage: 425 B.D.S , QD
     Route: 048
     Dates: start: 202002
  4. SULPRIDE [Concomitant]
     Active Substance: SULPIRIDE
     Dosage: 200 MILLIGRAM, BID
  5. SIMVASTATIN. [Concomitant]
     Active Substance: SIMVASTATIN
     Dosage: 20 MILLIGRAM, PM
     Route: 048
  6. CLOZARIL [Suspect]
     Active Substance: CLOZAPINE
     Dosage: 225 MILLIGRAM, PM
     Route: 048
     Dates: start: 202002
  7. ZOPICLONE [Concomitant]
     Active Substance: ZOPICLONE
     Dosage: 3.75 MILLIGRAM, PRN
  8. HYOSCINE [Concomitant]
     Active Substance: SCOPOLAMINE
     Dosage: 300 MILLIGRAM, TID
  9. METFORMIN [Concomitant]
     Active Substance: METFORMIN HYDROCHLORIDE
     Dosage: 1000 MILLIGRAM, QD
  10. PAROXETINE. [Concomitant]
     Active Substance: PAROXETINE
     Dosage: 20 MILLIGRAM, ONCE DAILY
  11. ALOGLIPTIN. [Concomitant]
     Active Substance: ALOGLIPTIN
     Dosage: 25 MILLIGRAM, QD
  12. OMEPRAZOLE. [Concomitant]
     Active Substance: OMEPRAZOLE
     Dosage: 20 MILLIGRAM

REACTIONS (11)
  - Loss of consciousness [Unknown]
  - Depression [Unknown]
  - Muscular weakness [Unknown]
  - Dizziness [Unknown]
  - Anger [Unknown]
  - Emphysema [Not Recovered/Not Resolved]
  - Agitation [Not Recovered/Not Resolved]
  - Drug dose titration not performed [Unknown]
  - Urinary tract infection [Recovered/Resolved]
  - Fear [Unknown]
  - Product dose omission [Recovered/Resolved]

NARRATIVE: CASE EVENT DATE: 201912
